FAERS Safety Report 4546820-4 (Version None)
Quarter: 2005Q1

REPORT INFORMATION
  Report Type: 
  Country: None (occurrence: None)
  Receive Date: 20050105
  Receipt Date: 20041216
  Transmission Date: 20050727
  Serious: Yes (Other)
  Sender: FDA-Public Use
  Company Number: GBS040915505

PATIENT
  Age: 30 Year
  Sex: Male

DRUGS (3)
  1. FLUOXETINE [Suspect]
     Dosage: 20 MG DAY
     Dates: end: 20040326
  2. CLOZARIL [Concomitant]
  3. VALPROATE SODIUM [Concomitant]

REACTIONS (11)
  - ACCIDENTAL OVERDOSE [None]
  - AKINESIA [None]
  - BLOOD PRESSURE INCREASED [None]
  - CEREBRAL VENTRICLE DILATATION [None]
  - COMPUTERISED TOMOGRAM ABNORMAL [None]
  - DRUG INTERACTION [None]
  - DRUG LEVEL INCREASED [None]
  - EPILEPSY [None]
  - GRAND MAL CONVULSION [None]
  - HEART RATE INCREASED [None]
  - NERVOUS SYSTEM DISORDER [None]
